FAERS Safety Report 7465439-9 (Version None)
Quarter: 2011Q2

REPORT INFORMATION
  Report Type: 
  Country: None (occurrence: None)
  Receive Date: 20110509
  Receipt Date: 20110501
  Transmission Date: 20111010
  Serious: Yes (Other)
  Sender: FDA-Public Use
  Company Number: US-B.I. PHARMACEUTICALS,INC./RIDGEFIELD-2011-BP-12175BP

PATIENT
  Sex: Female

DRUGS (1)
  1. DULCOLAX [Suspect]

REACTIONS (3)
  - NASAL DISORDER [None]
  - VOMITING [None]
  - THROAT TIGHTNESS [None]
